FAERS Safety Report 17614356 (Version 1)
Quarter: 2020Q2

REPORT INFORMATION
  Report Type: Report from Study
  Country: None (occurrence: US)
  Receive Date: 20200402
  Receipt Date: 20200402
  Transmission Date: 20200713
  Serious: Yes (Other)
  Sender: FDA-Public Use
  Company Number: US-ABBVIE-20K-163-3345957-00

PATIENT
  Age: 37 Year
  Sex: Female

DRUGS (2)
  1. SYNTHROID [Suspect]
     Active Substance: LEVOTHYROXINE SODIUM
     Indication: HYPOTHYROIDISM
     Dosage: ONE TABLET 6 DAYS A WEEK AND NO TABLET ON  SUNDAY
     Route: 048
     Dates: start: 2015, end: 20200331
  2. SYNTHROID [Suspect]
     Active Substance: LEVOTHYROXINE SODIUM
     Dosage: 1 TABLET ON MONDAY THRU SATURDAY AND 2 TABLETS ON SUNDAY
     Route: 048
     Dates: start: 20200331

REACTIONS (7)
  - Maternal exposure during pregnancy [Unknown]
  - Fatigue [Recovered/Resolved]
  - Malabsorption [Recovering/Resolving]
  - Polycystic ovaries [Not Recovered/Not Resolved]
  - In vitro fertilisation [Unknown]
  - Infertility [Recovered/Resolved]
  - Weight increased [Recovered/Resolved]

NARRATIVE: CASE EVENT DATE: 2019
